FAERS Safety Report 9938565 (Version 1)
Quarter: 2014Q1

REPORT INFORMATION
  Report Type: Report from Study
  Country: CA (occurrence: CA)
  Receive Date: 20140303
  Receipt Date: 20140303
  Transmission Date: 20141002
  Serious: Yes (Other)
  Sender: FDA-Public Use
  Company Number: CA-ROCHE-1357655

PATIENT
  Age: 73 Year
  Sex: Female

DRUGS (1)
  1. AVASTIN [Suspect]
     Indication: OVARIAN CANCER
     Route: 065

REACTIONS (1)
  - Cardiac flutter [Unknown]
